FAERS Safety Report 6052559-9 (Version None)
Quarter: 2009Q1

REPORT INFORMATION
  Report Type: 
  Country: None (occurrence: None)
  Receive Date: 20090121
  Receipt Date: 20090105
  Transmission Date: 20090719
  Serious: Yes (Hospitalization, Other)
  Sender: FDA-Public Use
  Company Number: WAES0901USA00400

PATIENT
  Age: 32 Year
  Sex: Female

DRUGS (1)
  1. METHYLDOPA [Suspect]
     Indication: HYPERTENSION
     Dosage: 500 MG, BID; PO
     Route: 048

REACTIONS (12)
  - BLOOD ALBUMIN DECREASED [None]
  - CAESAREAN SECTION [None]
  - GLOMERULONEPHRITIS ACUTE [None]
  - HAEMATOCRIT DECREASED [None]
  - HAEMODIALYSIS [None]
  - HAEMOGLOBIN DECREASED [None]
  - HYPERTENSION [None]
  - INTERNATIONAL NORMALISED RATIO DECREASED [None]
  - OEDEMA PERIPHERAL [None]
  - PROTEIN TOTAL DECREASED [None]
  - TREATMENT NONCOMPLIANCE [None]
  - UTERINE HYPERTONUS [None]
